FAERS Safety Report 15556846 (Version 4)
Quarter: 2018Q4

REPORT INFORMATION
  Report Type: Spontaneous
  Country: PT (occurrence: PT)
  Receive Date: 20181026
  Receipt Date: 20181224
  Transmission Date: 20190205
  Serious: Yes (Hospitalization, Other)
  Sender: FDA-Public Use
  Company Number: PHHY2018PT134378

PATIENT
  Age: 78 Year
  Sex: Female

DRUGS (9)
  1. AMLODIPINE [Suspect]
     Active Substance: AMLODIPINE BESYLATE
     Indication: HYPERTENSION
     Route: 065
  2. ACETYLSALICYLIC ACID [Concomitant]
     Active Substance: ASPIRIN
     Indication: HYPERTENSION
     Route: 065
  3. CANDESARTAN+HYDROCHLOROTHIAZIDE [Suspect]
     Active Substance: CANDESARTAN CILEXETIL\HYDROCHLOROTHIAZIDE
     Indication: HYPERTENSION
     Route: 065
  4. PERINDOPRIL [Suspect]
     Active Substance: PERINDOPRIL
     Indication: HYPERTENSION
     Route: 065
  5. ACETYLSALICYLIC ACID [Concomitant]
     Active Substance: ASPIRIN
     Indication: PRODUCT USED FOR UNKNOWN INDICATION
  6. FLUOXETINE [Suspect]
     Active Substance: FLUOXETINE HYDROCHLORIDE
     Indication: HYPERTENSION
     Route: 065
  7. CARVEDILOL. [Concomitant]
     Active Substance: CARVEDILOL
     Indication: HYPERTENSION
     Route: 065
  8. FLUOXETINE [Suspect]
     Active Substance: FLUOXETINE HYDROCHLORIDE
     Indication: PERSISTENT DEPRESSIVE DISORDER
  9. INDAPAMIDE. [Suspect]
     Active Substance: INDAPAMIDE
     Indication: HYPERTENSION
     Route: 065

REACTIONS (10)
  - Confusional state [Unknown]
  - Disorientation [Unknown]
  - Depressed level of consciousness [Unknown]
  - Hyponatraemia [Recovered/Resolved]
  - Psychomotor retardation [Unknown]
  - Renal impairment [Unknown]
  - Fatigue [Unknown]
  - Hypouricaemia [Unknown]
  - Speech disorder [Unknown]
  - Inappropriate antidiuretic hormone secretion [Recovered/Resolved]
